FAERS Safety Report 16767779 (Version 1)
Quarter: 2019Q3

REPORT INFORMATION
  Report Type: Spontaneous
  Country: US (occurrence: US)
  Receive Date: 20190903
  Receipt Date: 20190903
  Transmission Date: 20191005
  Serious: Yes (Hospitalization, Other)
  Sender: FDA-Public Use
  Company Number: US-ALLERGAN-1935351US

PATIENT
  Sex: Female

DRUGS (19)
  1. CLARITHROMYCIN. [Concomitant]
     Active Substance: CLARITHROMYCIN
  2. MONTELUKAST [Concomitant]
     Active Substance: MONTELUKAST SODIUM
  3. CYPROHEPTADINE. [Concomitant]
     Active Substance: CYPROHEPTADINE
  4. OMEPRAZOLE. [Concomitant]
     Active Substance: OMEPRAZOLE
  5. MEPHYTON [Concomitant]
     Active Substance: PHYTONADIONE
  6. AZTREONAM LYSINE [Suspect]
     Active Substance: AZTREONAM LYSINE
     Indication: CYSTIC FIBROSIS
     Dosage: 75 MG, TID, ALTERNATING 28 DAYS ON AND 28 DAYS OFF
     Route: 055
     Dates: start: 20170427
  7. CETIRIZINE [Concomitant]
     Active Substance: CETIRIZINE HYDROCHLORIDE
  8. ZENPEP [Suspect]
     Active Substance: PANCRELIPASE AMYLASE\PANCRELIPASE LIPASE\PANCRELIPASE PROTEASE
     Dosage: TAKE 5 CAPS TID WITH MEALS AND 4 CAPS WITH SNACKS 3 TO 4 TIMES DAILY
     Dates: start: 20190111
  9. PULMOZYME [Suspect]
     Active Substance: DORNASE ALFA
     Indication: CYSTIC FIBROSIS
     Dosage: 2.5 ML, QD
     Route: 055
     Dates: start: 20190111
  10. FLOVENT [Concomitant]
     Active Substance: FLUTICASONE PROPIONATE
  11. POLYETHYLENE GLYCOL [Concomitant]
     Active Substance: POLYETHYLENE GLYCOLS
  12. AZTREONAM LYSINE [Suspect]
     Active Substance: AZTREONAM LYSINE
     Dosage: 75 MG, TID, ALTERNATING 28 DAYS ON AND 28 DAYS OFF
     Route: 055
     Dates: start: 20140415
  13. MULTIVITAMINS [Concomitant]
     Active Substance: VITAMINS
  14. SUCRALFATE. [Concomitant]
     Active Substance: SUCRALFATE
  15. ZENPEP [Suspect]
     Active Substance: PANCRELIPASE AMYLASE\PANCRELIPASE LIPASE\PANCRELIPASE PROTEASE
     Indication: CYSTIC FIBROSIS
     Dosage: TAKE 5 CAPS TID WITH MEALS AND 4 CAPS WITH SNACKS 3 TO 4 TIMES DAILY
     Dates: start: 20190111
  16. VIOKACE [Concomitant]
     Active Substance: PANCRELIPASE AMYLASE\PANCRELIPASE LIPASE\PANCRELIPASE PROTEASE
  17. FLUTICASONE. [Concomitant]
     Active Substance: FLUTICASONE
  18. RANITIDINE. [Concomitant]
     Active Substance: RANITIDINE
  19. SODIUM CHLORIDE. [Concomitant]
     Active Substance: SODIUM CHLORIDE

REACTIONS (1)
  - Pneumothorax [Recovered/Resolved]

NARRATIVE: CASE EVENT DATE: 20190805
